FAERS Safety Report 14446299 (Version 1)
Quarter: 2018Q1

REPORT INFORMATION
  Report Type: Spontaneous
  Country: PT (occurrence: PT)
  Receive Date: 20180126
  Receipt Date: 20180126
  Transmission Date: 20180509
  Serious: Yes (Other)
  Sender: FDA-Public Use
  Company Number: PT-WEST-WARD PHARMACEUTICALS CORP.-PT-H14001-18-00444

PATIENT
  Age: 44 Year
  Sex: Female

DRUGS (10)
  1. CLINDAMYCIN. [Concomitant]
     Active Substance: CLINDAMYCIN
     Indication: INFECTION
     Route: 065
     Dates: start: 201703, end: 201703
  2. AMOXICILLIN + CLAVULANIC ACID [Concomitant]
     Active Substance: AMOXICILLIN\CLAVULANIC ACID
     Indication: RESPIRATORY TRACT INFECTION
     Route: 048
     Dates: start: 20170315, end: 201703
  3. AMOXICILLIN + CLAVULANIC ACID [Concomitant]
     Active Substance: AMOXICILLIN\CLAVULANIC ACID
     Route: 065
     Dates: start: 20170315, end: 20170331
  4. DOXYCYCLINE. [Concomitant]
     Active Substance: DOXYCYCLINE
     Indication: INFECTION
     Route: 065
     Dates: start: 201703, end: 201703
  5. NIMESULIDE [Concomitant]
     Active Substance: NIMESULIDE
     Indication: RESPIRATORY TRACT INFECTION
     Route: 048
     Dates: start: 20170315, end: 20170331
  6. METAMIZOLE MAGNESIUM [Concomitant]
     Active Substance: METAMIZOLE MAGNESIUM
     Indication: MYALGIA
     Route: 048
     Dates: start: 20170312, end: 20170312
  7. ETHINYLESTRADIOL + GESTODENE [Concomitant]
     Active Substance: ETHINYL ESTRADIOL\GESTODENE
     Indication: CONTRACEPTION
     Route: 048
  8. METHYLPREDNISOLONE. [Suspect]
     Active Substance: METHYLPREDNISOLONE
     Indication: DRUG REACTION WITH EOSINOPHILIA AND SYSTEMIC SYMPTOMS
     Route: 042
     Dates: start: 20170328, end: 201703
  9. TOPIRAMATE. [Concomitant]
     Active Substance: TOPIRAMATE
     Indication: EPILEPSY
     Route: 048
  10. PARACETAMOL [Concomitant]
     Active Substance: ACETAMINOPHEN
     Indication: PYREXIA
     Route: 048
     Dates: start: 20170313, end: 20170314

REACTIONS (3)
  - Amylase increased [Unknown]
  - Pancreatitis [Unknown]
  - Lipase increased [Unknown]

NARRATIVE: CASE EVENT DATE: 201703
